FAERS Safety Report 6644477-X (Version None)
Quarter: 2010Q1

REPORT INFORMATION
  Report Type: 
  Country: None (occurrence: None)
  Receive Date: 20100322
  Receipt Date: 20100309
  Transmission Date: 20100710
  Serious: Yes (Hospitalization)
  Sender: FDA-Public Use
  Company Number: GB-ROCHE-690134

PATIENT
  Sex: Female

DRUGS (1)
  1. TAMIFLU [Suspect]
     Indication: H1N1 INFLUENZA
     Dosage: 3 DOSES, WITHDRAWN
     Route: 065
     Dates: start: 20090801

REACTIONS (2)
  - BLISTER INFECTED [None]
  - LYMPHOEDEMA [None]
